FAERS Safety Report 19397377 (Version 1)
Quarter: 2021Q2

REPORT INFORMATION
  Report Type: Spontaneous
  Country: EC (occurrence: EC)
  Receive Date: 20210610
  Receipt Date: 20210610
  Transmission Date: 20210717
  Serious: Yes (Death)
  Sender: FDA-Public Use
  Company Number: EC-IPSEN BIOPHARMACEUTICALS, INC.-2021-14277

PATIENT
  Age: 74 Year
  Sex: Male
  Weight: 64 kg

DRUGS (1)
  1. DYSPORT [Suspect]
     Active Substance: ABOBOTULINUMTOXINA
     Indication: MUSCLE SPASTICITY
     Dosage: 1000 IU
     Route: 030
     Dates: start: 20210129, end: 20210129

REACTIONS (2)
  - Computerised tomogram thorax abnormal [Fatal]
  - SARS-CoV-2 test false negative [Fatal]

NARRATIVE: CASE EVENT DATE: 20210315
